FAERS Safety Report 10279378 (Version 2)
Quarter: 2014Q3

REPORT INFORMATION
  Report Type: Spontaneous
  Country: FR (occurrence: FR)
  Receive Date: 20140707
  Receipt Date: 20140717
  Transmission Date: 20150326
  Serious: Yes (Hospitalization)
  Sender: FDA-Public Use
  Company Number: PHHY2014FR082361

PATIENT
  Age: 66 Year
  Sex: Female

DRUGS (10)
  1. AMLODIPINE [Concomitant]
     Active Substance: AMLODIPINE BESYLATE
     Dosage: UNK UKN, UNK
  2. FEMARA [Suspect]
     Active Substance: LETROZOLE
     Dosage: 1.5 MG, DAILY
     Route: 048
     Dates: start: 201303
  3. INEXIUM//ESOMEPRAZOLE MAGNESIUM [Concomitant]
     Active Substance: ESOMEPRAZOLE MAGNESIUM
     Dosage: 40 MG, UNK
     Dates: start: 201303
  4. XGEVA [Concomitant]
     Active Substance: DENOSUMAB
     Dosage: UNK UKN, QMO
     Dates: start: 20140403
  5. CLASTOBAN [Concomitant]
     Active Substance: CLODRONIC ACID
     Dosage: UNK UKN, UNK
  6. JANUVIA [Concomitant]
     Active Substance: SITAGLIPTIN PHOSPHATE
     Dosage: 100 MG, UNK
     Dates: start: 201303
  7. COVERSYL                                /FRA/ [Concomitant]
     Active Substance: PERINDOPRIL
     Dosage: 10 MG, UNK
     Dates: start: 2014
  8. DIAMICRON [Concomitant]
     Active Substance: GLICLAZIDE
     Dosage: 30 MG, UNK
     Dates: start: 201303
  9. KARDEGIC [Concomitant]
     Active Substance: ASPIRIN LYSINE
     Dosage: 75 MG, UNK
     Dates: start: 201303
  10. PERINDOPRIL [Concomitant]
     Active Substance: PERINDOPRIL
     Dosage: UNK UKN, UNK

REACTIONS (4)
  - Dizziness [Unknown]
  - Gait disturbance [Unknown]
  - Polyneuropathy [Unknown]
  - Hypoaesthesia [Unknown]

NARRATIVE: CASE EVENT DATE: 201403
